FAERS Safety Report 6024047-7 (Version None)
Quarter: 2008Q4

REPORT INFORMATION
  Report Type: 
  Country: None (occurrence: None)
  Receive Date: 20081230
  Receipt Date: 20081219
  Transmission Date: 20090506
  Serious: Yes (Hospitalization)
  Sender: FDA-Public Use
  Company Number: IT-AMGEN-UK269846

PATIENT
  Sex: Male
  Weight: 80 kg

DRUGS (15)
  1. PANITUMUMAB [Suspect]
     Indication: COLORECTAL CANCER
     Route: 042
     Dates: start: 20070725
  2. FUROSEMIDE [Concomitant]
  3. CANRENOL [Concomitant]
  4. RAMIPRIL [Concomitant]
  5. AMIODARONE HCL [Concomitant]
  6. CARVEDILOL [Concomitant]
  7. DEXAMETHASONE [Concomitant]
  8. DURAGESIC-100 [Concomitant]
  9. OMEPRAZOLE [Concomitant]
  10. PURSENNID [Concomitant]
  11. NADROPARIN CALCIUM [Concomitant]
  12. IRINOTECAN HCL [Concomitant]
     Dates: start: 20070825
  13. FOLINIC ACID [Concomitant]
     Dates: start: 20070825
  14. FLUOROURACIL [Concomitant]
     Dates: start: 20070825
  15. FLUOROURACIL [Concomitant]
     Dates: start: 20070825, end: 20070827

REACTIONS (1)
  - FUNGAL INFECTION [None]
